FAERS Safety Report 24845170 (Version 2)
Quarter: 2025Q2

REPORT INFORMATION
  Report Type: Spontaneous
  Country: US (occurrence: US)
  Receive Date: 20250115
  Receipt Date: 20250513
  Transmission Date: 20250717
  Serious: No
  Sender: PFIZER
  Company Number: US-PFIZER INC-PV202500005182

PATIENT
  Age: 46 Year
  Sex: Female

DRUGS (5)
  1. DOCETAXEL [Suspect]
     Active Substance: DOCETAXEL
     Indication: Hormone receptor positive HER2 negative breast cancer
     Dates: start: 20170110, end: 20170404
  2. DOCETAXEL [Suspect]
     Active Substance: DOCETAXEL
     Indication: Hormone receptor positive HER2 negative breast cancer
     Dates: start: 20170110, end: 20170404
  3. DEXAMETHASONE [Concomitant]
     Active Substance: DEXAMETHASONE
     Indication: Chemotherapy
  4. CYCLOPHOSPHAMIDE [Concomitant]
     Active Substance: CYCLOPHOSPHAMIDE
     Indication: Chemotherapy
  5. CYTOXAN [Concomitant]
     Active Substance: CYCLOPHOSPHAMIDE
     Indication: Chemotherapy

REACTIONS (2)
  - Lacrimal structure injury [Unknown]
  - Lacrimation increased [Not Recovered/Not Resolved]

NARRATIVE: CASE EVENT DATE: 20170110
